FAERS Safety Report 7292689-7 (Version None)
Quarter: 2011Q1

REPORT INFORMATION
  Report Type: 
  Country: None (occurrence: None)
  Receive Date: 20110215
  Receipt Date: 20110202
  Transmission Date: 20110831
  Serious: Yes (Hospitalization)
  Sender: FDA-Public Use
  Company Number: PHHY2011CA08884

PATIENT
  Sex: Female

DRUGS (2)
  1. ATACAND [Concomitant]
     Dosage: UNK
  2. ALISKIREN [Suspect]
     Indication: HYPERTENSION
     Dosage: 150 MG, QD
     Route: 048
     Dates: start: 20100401, end: 20101112

REACTIONS (4)
  - DIZZINESS [None]
  - DYSPNOEA [None]
  - SYNCOPE [None]
  - ASTHENIA [None]
